FAERS Safety Report 13021798 (Version 1)
Quarter: 2016Q4

REPORT INFORMATION
  Report Type: Spontaneous
  Country: US (occurrence: US)
  Receive Date: 20161213
  Receipt Date: 20161213
  Transmission Date: 20170207
  Serious: No
  Sender: FDA-Public Use
  Company Number: US-STRIDES ARCOLAB LIMITED-2016SP013306

PATIENT

DRUGS (1)
  1. DUTASTERIDE CAPSULES 0.5 MG [Suspect]
     Active Substance: DUTASTERIDE
     Indication: PRODUCT USED FOR UNKNOWN INDICATION
     Dosage: 0.5 MG, 30 COUNT BOTTLE
     Route: 048

REACTIONS (1)
  - Product physical issue [Unknown]
